FAERS Safety Report 7952530-3 (Version None)
Quarter: 2011Q4

REPORT INFORMATION
  Report Type: 
  Country: None (occurrence: None)
  Receive Date: 20111201
  Receipt Date: 20111129
  Transmission Date: 20120403
  Serious: Yes (Death, Other)
  Sender: FDA-Public Use
  Company Number: PHHY2011FR104628

PATIENT
  Sex: Female

DRUGS (6)
  1. SOTALOL HCL [Suspect]
     Indication: VENTRICULAR TACHYCARDIA
     Dosage: 1 DF, BID
     Route: 048
  2. FUROSEMIDE [Suspect]
     Indication: HYPERTENSION
     Dosage: 1 DF, BID
  3. NICARDIPINE HCL [Suspect]
     Indication: HYPERTENSION
     Dosage: 1 DF, BID
  4. NEXAVAR [Suspect]
     Indication: RENAL CANCER
     Dosage: 1 DF, TID
     Route: 048
     Dates: start: 20110201
  5. NEXAVAR [Suspect]
     Dosage: 1 DF, QID
  6. ZOPICLONE [Suspect]
     Indication: INSOMNIA
     Dosage: 1 DF, QD

REACTIONS (7)
  - HEPATITIS ACUTE [None]
  - CARDIAC ARREST [None]
  - ASPARTATE AMINOTRANSFERASE INCREASED [None]
  - PROTHROMBIN TIME SHORTENED [None]
  - LACTIC ACIDOSIS [None]
  - TORSADE DE POINTES [None]
  - VENTRICULAR ARRHYTHMIA [None]
